FAERS Safety Report 5472687-6 (Version None)
Quarter: 2007Q4

REPORT INFORMATION
  Report Type: 
  Country: None (occurrence: None)
  Receive Date: 20071001
  Receipt Date: 20060914
  Transmission Date: 20080405
  Serious: No
  Sender: FDA-Public Use
  Company Number: US-ASTRAZENECA-2006UW18025

PATIENT
  Age: 64 Year
  Sex: Female
  Weight: 59 kg

DRUGS (6)
  1. ARIMIDEX [Suspect]
     Indication: BREAST CANCER FEMALE
     Route: 048
     Dates: start: 20050101
  2. SYNTHROID [Concomitant]
  3. EFFEXOR [Concomitant]
  4. STELAZINE [Concomitant]
  5. XANAX [Concomitant]
  6. TRAZODONE HCL [Concomitant]

REACTIONS (7)
  - ALOPECIA [None]
  - CONSTIPATION [None]
  - COUGH [None]
  - HYPOAESTHESIA [None]
  - INSOMNIA [None]
  - PAIN IN JAW [None]
  - WEIGHT INCREASED [None]
